FAERS Safety Report 7949574-4 (Version None)
Quarter: 2011Q4

REPORT INFORMATION
  Report Type: 
  Country: None (occurrence: None)
  Receive Date: 20111130
  Receipt Date: 20111114
  Transmission Date: 20120403
  Serious: Yes (Hospitalization)
  Sender: FDA-Public Use
  Company Number: US-BAYER-2011-031631

PATIENT
  Age: 36 Year
  Sex: Female
  Weight: 62 kg

DRUGS (9)
  1. TOPAMAX [Concomitant]
     Indication: MIGRAINE
     Dosage: 125 MG, UNK
     Dates: start: 20070101
  2. RELPAX [Concomitant]
     Dosage: UNK
     Dates: start: 20070101
  3. ASCORBIC ACID [Concomitant]
  4. ALPRAZOLAM [Concomitant]
     Indication: ANXIETY
     Dosage: 0.5 MG, PRN
  5. IMITREX [Concomitant]
     Dosage: UNK
     Dates: start: 20070101
  6. YAZ [Suspect]
     Indication: ORAL CONTRACEPTION
     Dosage: UNK
     Dates: start: 20061001, end: 20090401
  7. AMERGE [Concomitant]
     Dosage: UNK
     Dates: start: 20070101
  8. XYZAL [Concomitant]
     Indication: RHINITIS ALLERGIC
     Dosage: 5 MG, UNK
     Route: 048
  9. IBUPROFEN [Concomitant]

REACTIONS (1)
  - PULMONARY EMBOLISM [None]
